FAERS Safety Report 6565939-X (Version None)
Quarter: 2010Q1

REPORT INFORMATION
  Report Type: 
  Country: None (occurrence: None)
  Receive Date: 20100129
  Receipt Date: 20100129
  Transmission Date: 20100710
  Serious: Yes (Other)
  Sender: FDA-Public Use
  Company Number: None

PATIENT
  Age: 74 Year
  Sex: Female

DRUGS (2)
  1. ARIXTRA [Suspect]
     Indication: DEEP VEIN THROMBOSIS
     Dosage: 5 MG DAILY SQ
     Route: 058
     Dates: start: 20091201, end: 20100127
  2. ARIXTRA [Suspect]
     Indication: PULMONARY EMBOLISM
     Dosage: 5 MG DAILY SQ
     Route: 058
     Dates: start: 20091201, end: 20100127

REACTIONS (2)
  - EPISTAXIS [None]
  - NASAL DRYNESS [None]
